APPROVED DRUG PRODUCT: NAFTIN
Active Ingredient: NAFTIFINE HYDROCHLORIDE
Strength: 2%
Dosage Form/Route: GEL;TOPICAL
Application: N204286 | Product #001 | TE Code: AB
Applicant: LEGACY PHARMA INC
Approved: Jun 27, 2013 | RLD: Yes | RS: Yes | Type: RX

PATENTS:
Patent 9161914 | Expires: Jan 31, 2033
Patent 10729667 | Expires: Jan 31, 2033
Patent 8778365 | Expires: Jan 31, 2033
Patent 10695303 | Expires: Jan 31, 2033
Patent 10166206 | Expires: Jan 31, 2033
Patent 10166205 | Expires: Jan 31, 2033